FAERS Safety Report 12101321 (Version 2)
Quarter: 2016Q1

REPORT INFORMATION
  Report Type: Spontaneous
  Country: US (occurrence: US)
  Receive Date: 20160222
  Receipt Date: 20160308
  Transmission Date: 20160526
  Serious: Yes (Hospitalization, Other)
  Sender: FDA-Public Use
  Company Number: US-PFIZER INC-2016106505

PATIENT
  Sex: Female
  Weight: 64 kg

DRUGS (1)
  1. NEURONTIN [Suspect]
     Active Substance: GABAPENTIN
     Indication: PAIN IN EXTREMITY
     Dosage: 400 MG, 1X/DAY
     Route: 048

REACTIONS (2)
  - Product use issue [Unknown]
  - Pneumonia [Unknown]
